FAERS Safety Report 12389145 (Version 1)
Quarter: 2016Q2

REPORT INFORMATION
  Report Type: Report from Study
  Country: LS (occurrence: LS)
  Receive Date: 20160520
  Receipt Date: 20160520
  Transmission Date: 20160815
  Serious: Yes (Death)
  Sender: FDA-Public Use
  Company Number: LS-JNJFOC-20160516766

PATIENT
  Age: 59 Year
  Sex: Male
  Weight: 58 kg

DRUGS (9)
  1. PROTHIONAMIDE [Suspect]
     Active Substance: PROTIONAMIDE
     Indication: TUBERCULOSIS
     Route: 048
     Dates: start: 20160428, end: 20160515
  2. PARA-AMINOSALICYLIC ACID [Suspect]
     Active Substance: AMINOSALICYLIC ACID
     Indication: TUBERCULOSIS
     Route: 048
     Dates: start: 20160428, end: 20160515
  3. BEDAQUILINE [Suspect]
     Active Substance: BEDAQUILINE
     Indication: TUBERCULOSIS
     Route: 048
     Dates: start: 20160428, end: 20160515
  4. CYCLOSERINE. [Suspect]
     Active Substance: CYCLOSERINE
     Indication: TUBERCULOSIS
     Route: 048
     Dates: start: 20160428, end: 20160515
  5. METOCLOPRAMIDE. [Concomitant]
     Active Substance: METOCLOPRAMIDE
     Indication: VOMITING
     Route: 048
     Dates: start: 20160420
  6. LEVOFLOXACIN. [Suspect]
     Active Substance: LEVOFLOXACIN
     Indication: TUBERCULOSIS
     Route: 048
     Dates: start: 20160428, end: 20160515
  7. CAPTOPRIL. [Concomitant]
     Active Substance: CAPTOPRIL
     Indication: HIV ASSOCIATED NEPHROPATHY
     Route: 048
     Dates: start: 20160501, end: 20160506
  8. PYRAZINAMIDE. [Suspect]
     Active Substance: PYRAZINAMIDE
     Indication: TUBERCULOSIS
     Route: 048
     Dates: start: 20160428, end: 20160515
  9. COTRIMOXAZOLE [Concomitant]
     Active Substance: SULFAMETHOXAZOLE\TRIMETHOPRIM
     Indication: PROPHYLAXIS
     Route: 048
     Dates: start: 20160420

REACTIONS (1)
  - Acute kidney injury [Fatal]

NARRATIVE: CASE EVENT DATE: 201604
